FAERS Safety Report 9442558 (Version 1)
Quarter: 2013Q3

REPORT INFORMATION
  Report Type: Spontaneous
  Country: US (occurrence: None)
  Receive Date: 20130805
  Receipt Date: 20130805
  Transmission Date: 20140515
  Serious: Yes (Hospitalization)
  Sender: FDA-Public Use
  Company Number: None

PATIENT
  Sex: Male

DRUGS (1)
  1. ENBREL [Suspect]
     Dosage: TWICE PER WEEK
     Dates: start: 20130319, end: 20130802

REACTIONS (2)
  - Chest pain [None]
  - Blood creatine phosphokinase increased [None]
